FAERS Safety Report 7859949-X (Version None)
Quarter: 2011Q4

REPORT INFORMATION
  Report Type: 
  Country: None (occurrence: None)
  Receive Date: 20111026
  Receipt Date: 20111026
  Transmission Date: 20120403
  Serious: Yes (Life-Threatening, Hospitalization)
  Sender: FDA-Public Use
  Company Number: None

PATIENT
  Age: 68 Year
  Sex: Male
  Weight: 99.8 kg

DRUGS (1)
  1. METHADONE HCL [Suspect]
     Indication: PAIN
     Dosage: 30 MG TID PO
     Route: 048
     Dates: start: 20100108, end: 20111006

REACTIONS (6)
  - VENTRICULAR TACHYCARDIA [None]
  - TORSADE DE POINTES [None]
  - BLOOD POTASSIUM DECREASED [None]
  - OSTEONECROSIS OF JAW [None]
  - ACTINOMYCOSIS [None]
  - LONG QT SYNDROME [None]
